FAERS Safety Report 4864567-1 (Version None)
Quarter: 2005Q4

REPORT INFORMATION
  Report Type: 
  Country: None (occurrence: None)
  Receive Date: 20051222
  Receipt Date: 20020423
  Transmission Date: 20060501
  Serious: Yes (Life-Threatening, Hospitalization)
  Sender: FDA-Public Use
  Company Number: PHEH2002US03915

PATIENT
  Age: 65 Year
  Sex: Male
  Weight: 87.9 kg

DRUGS (3)
  1. STI571 [Suspect]
     Indication: PROSTATE CANCER METASTATIC
     Dosage: 600 MG, QD
     Route: 048
     Dates: start: 20020329, end: 20020415
  2. OXYBUTYNIN [Concomitant]
  3. LORTAB [Concomitant]

REACTIONS (10)
  - ANOREXIA [None]
  - ASTHENIA [None]
  - BLOOD CREATININE ABNORMAL [None]
  - BLOOD UREA INCREASED [None]
  - HAEMODIALYSIS [None]
  - NAUSEA [None]
  - RENAL FAILURE ACUTE [None]
  - RENAL TUBULAR NECROSIS [None]
  - URINARY TRACT INFECTION [None]
  - VOMITING [None]
